FAERS Safety Report 4883796-4 (Version None)
Quarter: 2006Q1

REPORT INFORMATION
  Report Type: 
  Country: None (occurrence: None)
  Receive Date: 20060113
  Receipt Date: 20051223
  Transmission Date: 20060701
  Serious: Yes (Other)
  Sender: FDA-Public Use
  Company Number: US200512000672

PATIENT
  Age: 49 Year
  Sex: Male
  Weight: 192 kg

DRUGS (23)
  1. ZYPREXA [Suspect]
     Indication: PSYCHOTIC DISORDER
     Dosage: SEE IMAGE
     Route: 048
     Dates: start: 19980101, end: 20000101
  2. ZYPREXA [Suspect]
     Indication: PSYCHOTIC DISORDER
     Dosage: SEE IMAGE
     Route: 048
     Dates: start: 20000101, end: 20010702
  3. ZYPREXA [Suspect]
     Indication: PSYCHOTIC DISORDER
     Dosage: SEE IMAGE
     Route: 048
     Dates: start: 20010702, end: 20011029
  4. ZYPREXA [Suspect]
     Indication: PSYCHOTIC DISORDER
     Dosage: SEE IMAGE
     Route: 048
     Dates: start: 20011029, end: 20020109
  5. ZYPREXA [Suspect]
     Indication: PSYCHOTIC DISORDER
     Dosage: SEE IMAGE
     Route: 048
     Dates: start: 20020109, end: 20020424
  6. ZYPREXA [Suspect]
     Indication: PSYCHOTIC DISORDER
     Dosage: SEE IMAGE
     Route: 048
     Dates: start: 20020424, end: 20020708
  7. ZYPREXA [Suspect]
     Indication: PSYCHOTIC DISORDER
     Dosage: SEE IMAGE
     Route: 048
     Dates: start: 20040922, end: 20041130
  8. ZYPREXA [Suspect]
     Indication: PSYCHOTIC DISORDER
     Dosage: SEE IMAGE
     Route: 048
     Dates: start: 20041130, end: 20050104
  9. ZYPREXA [Suspect]
     Indication: PSYCHOTIC DISORDER
     Dosage: SEE IMAGE
     Route: 048
     Dates: start: 20020708, end: 20050120
  10. ZYPREXA [Suspect]
     Indication: PSYCHOTIC DISORDER
     Dosage: SEE IMAGE
     Route: 048
     Dates: start: 20050728, end: 20050730
  11. ZYPREXA [Suspect]
     Indication: PSYCHOTIC DISORDER
     Dosage: SEE IMAGE
     Route: 048
     Dates: start: 20050730, end: 20050830
  12. ZYPREXA [Suspect]
     Indication: PSYCHOTIC DISORDER
     Dosage: SEE IMAGE
     Route: 048
     Dates: start: 20050830, end: 20050912
  13. ZYPREXA [Suspect]
     Indication: PSYCHOTIC DISORDER
     Dosage: SEE IMAGE
     Route: 048
     Dates: start: 20050912, end: 20051022
  14. ZYPREXA [Suspect]
     Indication: PSYCHOTIC DISORDER
     Dosage: SEE IMAGE
     Route: 048
     Dates: start: 20051022, end: 20051103
  15. ZYPREXA [Suspect]
     Indication: PSYCHOTIC DISORDER
     Dosage: SEE IMAGE
     Route: 048
     Dates: start: 20050120
  16. ZYPREXA [Suspect]
     Indication: PSYCHOTIC DISORDER
     Dosage: SEE IMAGE
     Route: 048
     Dates: start: 20051103
  17. PROZAC [Concomitant]
  18. ABILIFY [Concomitant]
  19. GEODON [Concomitant]
  20. WELLBUTRIN [Concomitant]
  21. DEXEDRINE [Concomitant]
  22. CYLERT [Concomitant]
  23. RITALIN [Concomitant]

REACTIONS (14)
  - ANAEMIA [None]
  - ANAL FISSURE [None]
  - ANAL SPASM [None]
  - DIABETES MELLITUS NON-INSULIN-DEPENDENT [None]
  - ERECTILE DYSFUNCTION [None]
  - HYPERGLYCAEMIA [None]
  - HYPERLIPIDAEMIA [None]
  - LIVER FUNCTION TEST ABNORMAL [None]
  - OBESITY [None]
  - PRESCRIBED OVERDOSE [None]
  - RECTAL HAEMORRHAGE [None]
  - THROMBOCYTHAEMIA [None]
  - TREATMENT NONCOMPLIANCE [None]
  - TREMOR [None]
